FAERS Safety Report 25915297 (Version 2)
Quarter: 2025Q4

REPORT INFORMATION
  Report Type: Spontaneous
  Country: US (occurrence: US)
  Receive Date: 20251013
  Receipt Date: 20251021
  Transmission Date: 20260118
  Serious: Yes (Other)
  Sender: ALCON
  Company Number: US-ALCON LABORATORIES-ALC2025US005138

PATIENT
  Sex: Female

DRUGS (1)
  1. SYSTANE ULTRA [Suspect]
     Active Substance: POLYETHYLENE GLYCOL 400\PROPYLENE GLYCOL
     Indication: Eye disorder
     Dosage: UNK, 10 VIALS PER DAY
     Route: 047

REACTIONS (4)
  - Eye infection fungal [Unknown]
  - Blindness [Unknown]
  - Ulcerative keratitis [Unknown]
  - Recalled product administered [Unknown]
